FAERS Safety Report 17491089 (Version 4)
Quarter: 2020Q2

REPORT INFORMATION
  Report Type: Spontaneous
  Country: US (occurrence: US)
  Receive Date: 20200303
  Receipt Date: 20200619
  Transmission Date: 20200713
  Serious: No
  Sender: FDA-Public Use
  Company Number: US-PFIZER INC-2020081147

PATIENT
  Age: 76 Year
  Sex: Female

DRUGS (14)
  1. PARAPLATIN [Concomitant]
     Active Substance: CARBOPLATIN
     Dosage: 430 MG, SINGLE
     Dates: start: 20170721, end: 20170721
  2. TAXOTERE [Concomitant]
     Active Substance: DOCETAXEL
     Dosage: 147.8 MG, SINGLE
     Dates: start: 20170721, end: 20170721
  3. PARAPLATIN [Concomitant]
     Active Substance: CARBOPLATIN
     Dosage: 487.2 MG, SINGLE
     Dates: start: 20170630, end: 20170630
  4. SIMVASTATIN. [Concomitant]
     Active Substance: SIMVASTATIN
     Dosage: 10 MG, UNK
     Dates: start: 20130601
  5. TAXOTERE [Concomitant]
     Active Substance: DOCETAXEL
     Indication: CHEMOTHERAPY
     Dosage: 147.8 MG, SINGLE
     Dates: start: 20170608, end: 20170608
  6. PARAPLATIN [Concomitant]
     Active Substance: CARBOPLATIN
     Dosage: 459 MG, SINGLE
     Dates: start: 20170830, end: 20170830
  7. TAXOTERE [Concomitant]
     Active Substance: DOCETAXEL
     Dosage: 147.8 MG, SINGLE
     Dates: start: 20170810, end: 20170810
  8. PARAPLATIN [Concomitant]
     Active Substance: CARBOPLATIN
     Dosage: 437 MG, SINGLE
     Dates: start: 20170810, end: 20170810
  9. PARAPLATIN [Concomitant]
     Active Substance: CARBOPLATIN
     Dosage: 481.2 MG, SINGLE
     Dates: start: 20170920, end: 20170920
  10. TAXOTERE [Concomitant]
     Active Substance: DOCETAXEL
     Dosage: 147.8 MG, SINGLE
     Dates: start: 20170630, end: 20170630
  11. TAXOTERE [Concomitant]
     Active Substance: DOCETAXEL
     Dosage: 147.8 MG, SINGLE
     Dates: start: 20170830, end: 20170830
  12. DOCETAXEL. [Suspect]
     Active Substance: DOCETAXEL
     Indication: BREAST CANCER FEMALE
     Dosage: UNK, CYCLIC (EVERY THREE WEEKS, 06 CYCLES)
     Dates: start: 20170608, end: 20170920
  13. PARAPLATIN [Concomitant]
     Active Substance: CARBOPLATIN
     Indication: CHEMOTHERAPY
     Dosage: 433.2 MG, SINGLE
     Dates: start: 20170608, end: 20170608
  14. TAXOTERE [Concomitant]
     Active Substance: DOCETAXEL
     Dosage: 147.8 MG, SINGLE
     Dates: start: 20170920, end: 20170920

REACTIONS (5)
  - Alopecia [Not Recovered/Not Resolved]
  - Hair colour changes [Not Recovered/Not Resolved]
  - Hair disorder [Not Recovered/Not Resolved]
  - Madarosis [Not Recovered/Not Resolved]
  - Hair texture abnormal [Not Recovered/Not Resolved]

NARRATIVE: CASE EVENT DATE: 201706
